FAERS Safety Report 23660055 (Version 1)
Quarter: 2024Q1

REPORT INFORMATION
  Report Type: Spontaneous
  Country: SE (occurrence: SE)
  Receive Date: 20240321
  Receipt Date: 20240321
  Transmission Date: 20240410
  Serious: Yes (Hospitalization)
  Sender: FDA-Public Use
  Company Number: SE-BAYER-2024A040136

PATIENT
  Sex: Female

DRUGS (1)
  1. MIRENA [Suspect]
     Active Substance: LEVONORGESTREL
     Dosage: 20?G/DAY
     Route: 015
     Dates: start: 202312

REACTIONS (8)
  - Status migrainosus [Not Recovered/Not Resolved]
  - Headache [None]
  - Hyperacusis [None]
  - Photophobia [None]
  - Visual impairment [Recovered/Resolved]
  - Procedural pain [Recovered/Resolved]
  - Genital haemorrhage [Recovered/Resolved]
  - Dysmenorrhoea [Recovering/Resolving]

NARRATIVE: CASE EVENT DATE: 20231201
